FAERS Safety Report 9397258 (Version 2)
Quarter: 2013Q3

REPORT INFORMATION
  Report Type: Report from Study
  Country: ES (occurrence: ES)
  Receive Date: 20130712
  Receipt Date: 20130722
  Transmission Date: 20140515
  Serious: Yes (Other)
  Sender: FDA-Public Use
  Company Number: ES-GENZYME-MOZO-1000881

PATIENT
  Age: 44 Year
  Sex: Female
  Weight: 60 kg

DRUGS (8)
  1. PLERIXAFOR [Suspect]
     Indication: ACUTE MYELOID LEUKAEMIA
     Dosage: 12000 MCG, Q12HR (INDUCTION PHASE)
     Route: 042
     Dates: start: 20130524, end: 20130528
  2. FLUDARA [Suspect]
     Indication: ACUTE MYELOID LEUKAEMIA
     Dosage: 48 MG, QD (INDUCTION PHASE)
     Route: 042
     Dates: start: 20130524, end: 20130527
  3. IDARUBICIN [Suspect]
     Indication: ACUTE MYELOID LEUKAEMIA
     Dosage: 16 MG, QD (INDUCTION PHASE)
     Route: 042
     Dates: start: 20130524, end: 20130526
  4. CYTARABINE [Suspect]
     Indication: ACUTE MYELOID LEUKAEMIA
     Dosage: 3.2 G, QD (INDUCTION PHASE)
     Route: 042
     Dates: start: 20130525, end: 20130528
  5. G-CSF [Suspect]
     Indication: ACUTE MYELOID LEUKAEMIA
     Dosage: 300 MCG, QD (INDUCTION PHASE)
     Route: 058
     Dates: start: 20130524, end: 20130527
  6. AMIKACIN [Concomitant]
     Indication: PULMONARY MASS
     Dosage: UNK
     Route: 065
     Dates: start: 201306
  7. VORICONAZOLE [Concomitant]
     Indication: PULMONARY MASS
     Dosage: UNK
     Route: 065
     Dates: start: 201306
  8. LINEZOLID [Concomitant]
     Indication: PULMONARY MASS
     Dosage: UNK
     Route: 065
     Dates: start: 201306

REACTIONS (1)
  - Acute febrile neutrophilic dermatosis [Recovered/Resolved]
